FAERS Safety Report 4408634-5 (Version None)
Quarter: 2004Q3

REPORT INFORMATION
  Report Type: 
  Country: None (occurrence: None)
  Receive Date: 20040723
  Receipt Date: 20040713
  Transmission Date: 20050211
  Serious: Yes (Other)
  Sender: FDA-Public Use
  Company Number: 200410555BCA

PATIENT
  Age: 74 Year
  Sex: Male

DRUGS (9)
  1. CIPROFLOXACIN [Suspect]
     Dosage: 500 MG, BID, ORAL
     Route: 048
  2. COUMADIN [Suspect]
     Dosage: 5 MG, QD, ORAL
     Route: 048
  3. ALLOPURINOL [Concomitant]
  4. DIGOXIN [Concomitant]
  5. FUROSEMIDE [Concomitant]
  6. GLYBURIDE [Concomitant]
  7. LISINOPRIL [Concomitant]
  8. METFORMIN HCL [Concomitant]
  9. TYLENOL W/ CODEINE NO. 3 [Concomitant]

REACTIONS (4)
  - EPISTAXIS [None]
  - EYE HAEMORRHAGE [None]
  - HAEMOPTYSIS [None]
  - PROTHROMBIN LEVEL DECREASED [None]
